FAERS Safety Report 10177435 (Version 3)
Quarter: 2014Q3

REPORT INFORMATION
  Report Type: Spontaneous
  Country: GB (occurrence: GB)
  Receive Date: 20140516
  Receipt Date: 20140805
  Transmission Date: 20150326
  Serious: Yes (Hospitalization, Other)
  Sender: FDA-Public Use
  Company Number: 2014SP002707

PATIENT
  Age: 20 Year
  Sex: Male
  Weight: 76 kg

DRUGS (13)
  1. APREPITANT [Concomitant]
     Active Substance: APREPITANT
  2. DEXAMETHASONE. [Concomitant]
     Active Substance: DEXAMETHASONE
  3. DOXORUBICIN [Concomitant]
     Active Substance: DOXORUBICIN
  4. METOCLOPRAMIDE. [Concomitant]
     Active Substance: METOCLOPRAMIDE
  5. MIFAMURTIDE [Interacting]
     Active Substance: MIFAMURTIDE
     Indication: OSTEOSARCOMA
     Route: 042
     Dates: start: 20140317, end: 20140415
  6. METHOTREXATE [Interacting]
     Active Substance: METHOTREXATE
     Indication: OSTEOSARCOMA
  7. CISPLATIN. [Concomitant]
     Active Substance: CISPLATIN
     Indication: OSTEOSARCOMA
     Dates: start: 201308
  8. FILGRASTIM [Concomitant]
     Active Substance: FILGRASTIM
  9. ONDANSETRON [Concomitant]
     Active Substance: ONDANSETRON
  10. METHOTREXATE [Suspect]
     Active Substance: METHOTREXATE
     Indication: OSTEOSARCOMA
     Route: 042
     Dates: start: 20131202, end: 20140415
  11. CALCIUM LEVOFOLINATE [Concomitant]
     Active Substance: LEVOLEUCOVORIN CALCIUM
  12. SODIUM BICARBONATE. [Concomitant]
     Active Substance: SODIUM BICARBONATE
  13. PARACETAMOL [Concomitant]
     Active Substance: ACETAMINOPHEN

REACTIONS (5)
  - Potentiating drug interaction [Recovered/Resolved]
  - Renal impairment [Recovering/Resolving]
  - Chemotherapeutic drug level increased [Recovered/Resolved]
  - Drug clearance decreased [Recovering/Resolving]
  - Blood creatinine increased [Not Recovered/Not Resolved]

NARRATIVE: CASE EVENT DATE: 20140416
